FAERS Safety Report 4829819-X (Version None)
Quarter: 2005Q4

REPORT INFORMATION
  Report Type: 
  Country: None (occurrence: None)
  Receive Date: 20051117
  Receipt Date: 20051107
  Transmission Date: 20060501
  Serious: Yes (Death)
  Sender: FDA-Public Use
  Company Number: US-BOEHRINGER INGELHEIM PHARMACEUTICALS, INC.-2005-DE-04894GD

PATIENT
  Age: 57 Year

DRUGS (3)
  1. DILTIAZEM [Suspect]
     Route: 048
  2. CLONIDINE [Suspect]
     Route: 048
  3. VENLAFAXINE HCL [Suspect]
     Route: 048

REACTIONS (2)
  - DRUG ABUSER [None]
  - SUICIDE ATTEMPT [None]
